FAERS Safety Report 5275816-2 (Version None)
Quarter: 2007Q1

REPORT INFORMATION
  Report Type: 
  Country: None (occurrence: None)
  Receive Date: 20070326
  Receipt Date: 20070320
  Transmission Date: 20070707
  Serious: Yes (Death)
  Sender: FDA-Public Use
  Company Number: CM-GLAXOSMITHKLINE-B0463442A

PATIENT
  Age: 56 Year
  Sex: Female

DRUGS (4)
  1. ZANTAC [Suspect]
     Indication: PERFORATED ULCER
     Dosage: 50MG THREE TIMES PER DAY
     Route: 065
     Dates: start: 20070311, end: 20070316
  2. METRONIDAZOLE [Concomitant]
     Route: 065
  3. ACETAMINOPHEN [Concomitant]
     Route: 065
  4. CEPHALOSPORIN [Concomitant]
     Route: 065

REACTIONS (4)
  - ASTHENIA [None]
  - CHILLS [None]
  - CONVULSION [None]
  - DELIRIUM [None]
